FAERS Safety Report 5741707-3 (Version None)
Quarter: 2008Q2

REPORT INFORMATION
  Report Type: 
  Country: None (occurrence: None)
  Receive Date: 20080519
  Receipt Date: 20061127
  Transmission Date: 20081010
  Serious: No
  Sender: FDA-Public Use
  Company Number: US-BAYER-US-2006-037032

PATIENT
  Age: 65 Year
  Sex: Male
  Weight: 77 kg

DRUGS (2)
  1. ULTRAVIST 300 [Suspect]
     Indication: COMPUTERISED TOMOGRAM ABDOMEN
     Dosage: UNIT DOSE: 150 ML
     Dates: start: 20061115, end: 20061115
  2. CONTRAST MEDIA [Concomitant]

REACTIONS (3)
  - DYSPNOEA [None]
  - NASAL CONGESTION [None]
  - RESPIRATORY TRACT CONGESTION [None]
